FAERS Safety Report 11911471 (Version 1)
Quarter: 2016Q1

REPORT INFORMATION
  Report Type: Other
  Country: US (occurrence: US)
  Receive Date: 20160112
  Receipt Date: 20160112
  Transmission Date: 20160526
  Serious: Yes (Death)
  Sender: FDA-Public Use
  Company Number: US-NSR_02308_2016

PATIENT
  Age: 46 Year
  Sex: Female

DRUGS (15)
  1. SHORT-ACTING BETA-AGONIST [Concomitant]
     Indication: DYSPNOEA
     Route: 055
  2. SHORT-ACTING BETA-AGONIST [Concomitant]
     Indication: RESPIRATORY FAILURE
     Route: 055
  3. SHORT-ACTING BETA-AGONIST [Concomitant]
     Indication: SINUS TACHYCARDIA
     Route: 055
  4. NITROGLYCERINE [Concomitant]
     Active Substance: NITROGLYCERIN
     Indication: ACUTE PULMONARY OEDEMA
     Dosage: DF
     Route: 042
  5. CORTICOSTEROIDS [Concomitant]
     Active Substance: CORTICOSTEROID NOS
     Indication: ASTHMA
     Dosage: DF
  6. METHIMAZOLE. [Suspect]
     Active Substance: METHIMAZOLE
     Indication: THYROTOXIC CRISIS
     Dosage: 30 MG, FREQUENCY UNKNOWN
     Route: 048
  7. BRONCHODILATORS [Concomitant]
     Active Substance: UNSPECIFIED INGREDIENT
     Indication: DYSPNOEA
     Dosage: DF
  8. DIURETICS [Concomitant]
     Active Substance: UNSPECIFIED INGREDIENT
     Indication: ACUTE PULMONARY OEDEMA
     Dosage: DF
  9. HIGH DOSE INTRAVENOUS STEROIDS [Suspect]
     Active Substance: UNSPECIFIED INGREDIENT
     Indication: THYROTOXIC CRISIS
     Dosage: DF
     Route: 042
  10. EPINEPHRINE. [Concomitant]
     Active Substance: EPINEPHRINE
     Dosage: ^SEVERAL DOSES^
     Route: 058
  11. PROPRANOLOL [Suspect]
     Active Substance: PROPRANOLOL\PROPRANOLOL HYDROCHLORIDE
     Dosage: 40 MG, FREQUENCY UNKNOWN
     Route: 048
  12. SUPPLEMENTAL O2 [Concomitant]
     Indication: OXYGEN SUPPLEMENTATION
     Dosage: DF
     Route: 045
  13. SATURATED SOLUTION OF POTASSIUM IODIDE [Suspect]
     Active Substance: POTASSIUM IODIDE
     Indication: THYROTOXIC CRISIS
     Dosage: 5 G IN 5 ML, FREQUENCY UNKNOWN
     Route: 048
  14. METHYLPREDNISOLONE. [Concomitant]
     Active Substance: METHYLPREDNISOLONE
     Indication: RESPIRATORY FAILURE
     Dosage: DF
     Route: 042
  15. PROPRANOLOL [Suspect]
     Active Substance: PROPRANOLOL\PROPRANOLOL HYDROCHLORIDE
     Indication: THYROTOXIC CRISIS
     Dosage: DF
     Route: 042

REACTIONS (8)
  - Agitation [Unknown]
  - Multiple organ dysfunction syndrome [Fatal]
  - Coma [Unknown]
  - Bradycardia [Unknown]
  - Cardiac arrest [Unknown]
  - Circulatory collapse [Unknown]
  - Metabolic function test abnormal [Unknown]
  - Hyperthyroidism [Unknown]
